FAERS Safety Report 19783277 (Version 1)
Quarter: 2021Q3

REPORT INFORMATION
  Report Type: Spontaneous
  Country: US (occurrence: US)
  Receive Date: 20210903
  Receipt Date: 20210903
  Transmission Date: 20211014
  Serious: No
  Sender: FDA-Public Use
  Company Number: US-ALLERGAN-2034356US

PATIENT
  Sex: Female

DRUGS (1)
  1. TESTOSTERONE ? BP [Suspect]
     Active Substance: TESTOSTERONE
     Indication: TRANS-SEXUALISM
     Route: 065

REACTIONS (1)
  - Product use in unapproved indication [Unknown]
